FAERS Safety Report 10904352 (Version 1)
Quarter: 2015Q1

REPORT INFORMATION
  Report Type: Spontaneous
  Country: FR (occurrence: FR)
  Receive Date: 20150311
  Receipt Date: 20150311
  Transmission Date: 20150721
  Serious: Yes (Other)
  Sender: FDA-Public Use
  Company Number: FR-ROCHE-1549553

PATIENT
  Sex: Female

DRUGS (6)
  1. CLOMIPRAMINE [Concomitant]
     Active Substance: CLOMIPRAMINE
     Dosage: LONG-TERM TREATMENT
     Route: 065
  2. ENDOXAN [Concomitant]
     Active Substance: CYCLOPHOSPHAMIDE
     Route: 065
     Dates: start: 20150205
  3. ENDOXAN [Concomitant]
     Active Substance: CYCLOPHOSPHAMIDE
     Route: 065
     Dates: start: 20150304
  4. MABTHERA [Suspect]
     Active Substance: RITUXIMAB
     Indication: LYMPHOMA
     Route: 041
     Dates: start: 20150205
  5. MABTHERA [Suspect]
     Active Substance: RITUXIMAB
     Indication: SPLENOMEGALY
     Route: 041
     Dates: start: 20150304
  6. ZYLORIC [Concomitant]
     Active Substance: ALLOPURINOL

REACTIONS (2)
  - Epistaxis [Recovered/Resolved]
  - Thrombocytopenia [Recovered/Resolved]

NARRATIVE: CASE EVENT DATE: 20150206
